FAERS Safety Report 22854334 (Version 2)
Quarter: 2024Q2

REPORT INFORMATION
  Report Type: Spontaneous
  Country: PL (occurrence: PL)
  Receive Date: 20230823
  Receipt Date: 20240426
  Transmission Date: 20240716
  Serious: Yes (Life-Threatening)
  Sender: FDA-Public Use
  Company Number: PL-ADMA BIOLOGICS INC.-PL-2023ADM000183

PATIENT
  Age: 60 Year
  Sex: Female

DRUGS (1)
  1. HUMAN IMMUNOGLOBULIN G [Suspect]
     Active Substance: HUMAN IMMUNOGLOBULIN G
     Indication: Acquired epidermolysis bullosa
     Dosage: TOTAL DOSE OF 2 G/KG PER CYCLE WAS DIVIDED INTO FIVE EQUAL DOSES (400 MG/KG) AND ADMINISTERED ON FIV
     Route: 042

REACTIONS (3)
  - Epidermolysis bullosa [Recovered/Resolved]
  - Condition aggravated [Recovered/Resolved]
  - Off label use [Unknown]
